FAERS Safety Report 7430628-6 (Version None)
Quarter: 2011Q2

REPORT INFORMATION
  Report Type: 
  Country: None (occurrence: None)
  Receive Date: 20110421
  Receipt Date: 20110128
  Transmission Date: 20111010
  Serious: No
  Sender: FDA-Public Use
  Company Number: US-ASTRAZENECA-2011SE05128

PATIENT
  Age: 61 Year
  Sex: Female

DRUGS (5)
  1. TRAZODONE HCL [Concomitant]
  2. TOPROL-XL [Suspect]
     Indication: HYPERTENSION
     Route: 048
     Dates: start: 20110126
  3. DILANTIN [Concomitant]
     Indication: CONVULSION
  4. REMERON [Concomitant]
  5. SYNTHROID [Concomitant]

REACTIONS (4)
  - PNEUMONIA [None]
  - POLLAKIURIA [None]
  - NAUSEA [None]
  - VOMITING [None]
